FAERS Safety Report 19184664 (Version 10)
Quarter: 2025Q3

REPORT INFORMATION
  Report Type: Report from Study
  Country: CO (occurrence: CO)
  Receive Date: 20210427
  Receipt Date: 20250821
  Transmission Date: 20251021
  Serious: Yes (Other)
  Sender: TAKEDA
  Company Number: CO-TAKEDA-2020TUS029735

PATIENT
  Age: 62 Year
  Sex: Female
  Weight: 65 kg

DRUGS (2)
  1. VEDOLIZUMAB [Suspect]
     Active Substance: VEDOLIZUMAB
     Indication: Colitis ulcerative
  2. VEDOLIZUMAB [Suspect]
     Active Substance: VEDOLIZUMAB
     Dosage: 300 MILLIGRAM, Q6WEEKS
     Dates: start: 20250815

REACTIONS (13)
  - Colitis ulcerative [Not Recovered/Not Resolved]
  - Haematochezia [Unknown]
  - Rectal haemorrhage [Not Recovered/Not Resolved]
  - COVID-19 [Unknown]
  - Mucous stools [Not Recovered/Not Resolved]
  - Weight increased [Unknown]
  - Diarrhoea [Unknown]
  - Body height decreased [Unknown]
  - Abdominal pain [Recovering/Resolving]
  - Onychomadesis [Unknown]
  - Product dose omission issue [Unknown]
  - Weight decreased [Unknown]
  - Influenza [Unknown]

NARRATIVE: CASE EVENT DATE: 20200628
